FAERS Safety Report 8426841-1 (Version None)
Quarter: 2012Q2

REPORT INFORMATION
  Report Type: 
  Country: None (occurrence: None)
  Receive Date: 20120531
  Receipt Date: 20120523
  Transmission Date: 20120825
  Serious: Yes (Other)
  Sender: FDA-Public Use
  Company Number: B0804698A

PATIENT
  Sex: 0

DRUGS (1)
  1. ALKERAN [Suspect]
     Indication: MULTIPLE MYELOMA

REACTIONS (2)
  - GRAND MAL CONVULSION [None]
  - ENCEPHALOPATHY [None]
